FAERS Safety Report 20328038 (Version 1)
Quarter: 2022Q1

REPORT INFORMATION
  Report Type: Report from Study
  Country: MX (occurrence: MX)
  Receive Date: 20220112
  Receipt Date: 20220112
  Transmission Date: 20220424
  Serious: Yes (Other)
  Sender: FDA-Public Use
  Company Number: MX-NOVARTISPH-NVSC2022MX004075

PATIENT
  Sex: Male
  Weight: 80 kg

DRUGS (1)
  1. METFORMIN HYDROCHLORIDE\VILDAGLIPTIN [Suspect]
     Active Substance: METFORMIN HYDROCHLORIDE\VILDAGLIPTIN
     Indication: Product used for unknown indication
     Dosage: 1 DOSAGE FORM, BID (STERTED APPROXIMATELY 5 YEARS AGO)
     Route: 048

REACTIONS (8)
  - Diabetes mellitus [Unknown]
  - Cataract [Unknown]
  - Peripheral swelling [Unknown]
  - Blister [Unknown]
  - Impaired healing [Unknown]
  - Visual impairment [Unknown]
  - Limb discomfort [Not Recovered/Not Resolved]
  - Accident [Not Recovered/Not Resolved]
